FAERS Safety Report 7105255-0 (Version None)
Quarter: 2010Q4

REPORT INFORMATION
  Report Type: 
  Country: None (occurrence: None)
  Receive Date: 20101116
  Receipt Date: 20101105
  Transmission Date: 20110411
  Serious: Yes (Hospitalization)
  Sender: FDA-Public Use
  Company Number: NO-PURDUE-GBR-2010-0007299

PATIENT
  Sex: Male

DRUGS (1)
  1. NORSPAN 5 MIKROG/TIME DEPOTPLASTER [Suspect]
     Indication: PRODUCT USED FOR UNKNOWN INDICATION
     Dosage: 5 MCG/HR, UNK
     Route: 062

REACTIONS (2)
  - PNEUMONIA PNEUMOCOCCAL [None]
  - RESPIRATORY DEPRESSION [None]
